FAERS Safety Report 7871765-1 (Version None)
Quarter: 2011Q4

REPORT INFORMATION
  Report Type: 
  Country: None (occurrence: None)
  Receive Date: 20111029
  Receipt Date: 20110307
  Transmission Date: 20120403
  Serious: No
  Sender: FDA-Public Use
  Company Number: US-AMGEN-USASP2011012713

PATIENT
  Sex: Female

DRUGS (1)
  1. ENBREL [Suspect]
     Indication: ANKYLOSING SPONDYLITIS
     Dosage: 50 MG, QWK
     Dates: start: 20110120

REACTIONS (6)
  - NASAL CONGESTION [None]
  - PAIN IN EXTREMITY [None]
  - NEURALGIA [None]
  - EYE PAIN [None]
  - FACIAL PAIN [None]
  - ARTHRALGIA [None]
